FAERS Safety Report 6528710-0 (Version None)
Quarter: 2009Q4

REPORT INFORMATION
  Report Type: 
  Country: None (occurrence: None)
  Receive Date: 20091224
  Receipt Date: 20091217
  Transmission Date: 20100525
  Serious: Yes (Hospitalization)
  Sender: FDA-Public Use
  Company Number: 2008-185943-NL

PATIENT
  Age: 25 Year
  Sex: Female
  Weight: 47 kg

DRUGS (10)
  1. MIRTAZAPINE [Suspect]
     Indication: DEPRESSION
     Dosage: 15 MG;QD;PO
     Route: 048
     Dates: start: 20080619
  2. MIRTAZAPINE [Suspect]
     Indication: DEPRESSION
     Dosage: 15 MG;QD;PO
     Route: 048
     Dates: start: 20080711
  3. AMITRIPTYLINE HCL [Suspect]
     Indication: DEPRESSION
     Dosage: PO; 75 MG;QD;PO
     Route: 048
     Dates: start: 20080610, end: 20080618
  4. AMITRIPTYLINE HCL [Suspect]
     Indication: DEPRESSION
     Dosage: PO; 75 MG;QD;PO
     Route: 048
     Dates: start: 20080619
  5. LORAZEPAM [Suspect]
     Indication: DEPRESSION
     Dosage: 1 MG;QD
     Dates: start: 20080715, end: 20080717
  6. LORAZEPAM [Suspect]
     Indication: DEPRESSION
     Dosage: 1 MG;QD
     Dates: start: 20080630, end: 20080721
  7. PARACETAMOL [Concomitant]
  8. PARACETAMOL [Concomitant]
  9. PARACETAMOL [Concomitant]
  10. PARACETAMOL [Concomitant]

REACTIONS (1)
  - ELECTROCARDIOGRAM QT PROLONGED [None]
